FAERS Safety Report 11074957 (Version 1)
Quarter: 2015Q2

REPORT INFORMATION
  Report Type: Spontaneous
  Country: US (occurrence: US)
  Receive Date: 20150429
  Receipt Date: 20150429
  Transmission Date: 20150821
  Serious: Yes (Other)
  Sender: FDA-Public Use
  Company Number: US-PFIZER INC-2015140262

PATIENT
  Age: 73 Year
  Sex: Female
  Weight: 76 kg

DRUGS (6)
  1. GABAPENTIN. [Suspect]
     Active Substance: GABAPENTIN
     Dosage: 600MG DAILY (INCREASED TO 6 PILLS A DAY)
  2. INSULIN [Concomitant]
     Active Substance: INSULIN NOS
     Dosage: AT NIGHT DEPENDS ON WHAT NUMBERS ARE, POSSIBLY 15 TO 30 UNITS; VERY SELDOM SHE TAKES 30 UNITS
  3. METFORMIN [Concomitant]
     Active Substance: METFORMIN HYDROCHLORIDE
     Indication: DIABETES MELLITUS
     Dosage: UNK
  4. GABAPENTIN. [Suspect]
     Active Substance: GABAPENTIN
     Indication: DIABETIC NEPHROPATHY
     Dosage: 100 MG, 3X/DAY
  5. SIMVASTATIN. [Concomitant]
     Active Substance: SIMVASTATIN
     Indication: BLOOD CHOLESTEROL ABNORMAL
     Dosage: 40 MG, 1X/DAY
  6. BUPROPION [Concomitant]
     Active Substance: BUPROPION
     Indication: STRESS
     Dosage: 100 MG, 2X/DAY

REACTIONS (9)
  - Pneumonia [Not Recovered/Not Resolved]
  - Drug ineffective [Unknown]
  - Balance disorder [Not Recovered/Not Resolved]
  - Dizziness [Unknown]
  - Dysphemia [Unknown]
  - Bronchitis [Not Recovered/Not Resolved]
  - Loss of consciousness [Recovered/Resolved]
  - Fall [Unknown]
  - Tinnitus [Unknown]

NARRATIVE: CASE EVENT DATE: 2014
